FAERS Safety Report 10384472 (Version 2)
Quarter: 2014Q3

REPORT INFORMATION
  Report Type: Spontaneous
  Country: US (occurrence: US)
  Receive Date: 20140814
  Receipt Date: 20140826
  Transmission Date: 20150326
  Serious: Yes (Other)
  Sender: FDA-Public Use
  Company Number: CHPA2014US010525

PATIENT
  Age: 87 Year
  Sex: Female

DRUGS (6)
  1. VOLTAREN [Suspect]
     Active Substance: DICLOFENAC SODIUM
     Indication: ARTHRITIS
     Dosage: UNK, PRN
     Route: 061
     Dates: start: 201212
  2. VOLTAREN [Suspect]
     Active Substance: DICLOFENAC SODIUM
     Indication: ARTHRALGIA
     Dosage: UNK, PRN
     Route: 061
     Dates: start: 2010
  3. VOLTAREN [Suspect]
     Active Substance: DICLOFENAC SODIUM
     Indication: NECK PAIN
     Dosage: UNK, PRN
     Route: 061
  4. VOLTAREN [Suspect]
     Active Substance: DICLOFENAC SODIUM
     Indication: SCIATICA
  5. VOLTAREN [Suspect]
     Active Substance: DICLOFENAC SODIUM
     Indication: OFF LABEL USE
  6. ADVIL [Concomitant]
     Active Substance: IBUPROFEN
     Route: 048

REACTIONS (7)
  - Joint injury [Recovered/Resolved]
  - Therapeutic response changed [Unknown]
  - Neck pain [Not Recovered/Not Resolved]
  - Drug administered at inappropriate site [Unknown]
  - Bladder disorder [Recovered/Resolved]
  - Arthritis [Not Recovered/Not Resolved]
  - Underdose [Unknown]

NARRATIVE: CASE EVENT DATE: 201407
